FAERS Safety Report 9266012 (Version 1)
Quarter: 2013Q2

REPORT INFORMATION
  Report Type: Spontaneous
  Country: US (occurrence: US)
  Receive Date: 20130501
  Receipt Date: 20130501
  Transmission Date: 20140414
  Serious: No
  Sender: FDA-Public Use
  Company Number: US-009507513-1304USA017518

PATIENT
  Age: 28 Year
  Sex: Female

DRUGS (2)
  1. NUVARING [Suspect]
     Indication: CONTRACEPTION
     Dosage: 1 DF, 1 RING FOR 3 WEEKS
     Route: 067
     Dates: start: 20130129
  2. MAXALT [Concomitant]

REACTIONS (2)
  - Device expulsion [Unknown]
  - Wrong technique in drug usage process [Unknown]
